FAERS Safety Report 26050091 (Version 2)
Quarter: 2025Q4

REPORT INFORMATION
  Report Type: Spontaneous
  Country: US (occurrence: US)
  Receive Date: 20251116
  Receipt Date: 20251222
  Transmission Date: 20260119
  Serious: No
  Sender: SANOFI AVENTIS
  Company Number: US-SA-2025SA339272

PATIENT
  Age: 27 Year
  Sex: Female

DRUGS (1)
  1. DUPIXENT [Suspect]
     Active Substance: DUPILUMAB
     Indication: Asthma
     Dosage: 300 MG, QOW
     Route: 058

REACTIONS (6)
  - Wheezing [Not Recovered/Not Resolved]
  - Rash macular [Unknown]
  - Skin texture abnormal [Unknown]
  - Flushing [Unknown]
  - Dizziness [Unknown]
  - Nasopharyngitis [Not Recovered/Not Resolved]
